FAERS Safety Report 17067765 (Version 1)
Quarter: 2019Q4

REPORT INFORMATION
  Report Type: Spontaneous
  Country: US (occurrence: US)
  Receive Date: 20191122
  Receipt Date: 20191122
  Transmission Date: 20200122
  Serious: Yes (Other)
  Sender: FDA-Public Use
  Company Number: US-FRESENIUS KABI-FK201912974

PATIENT
  Age: 49 Year
  Sex: Female
  Weight: 45.8 kg

DRUGS (3)
  1. SMOFLIPID [Suspect]
     Active Substance: FISH OIL\MEDIUM-CHAIN TRIGLYCERIDES\OLIVE OIL\SOYBEAN OIL
     Indication: PARENTERAL NUTRITION
     Dosage: APPROXIMATELY 2GM/KG/DAY ; ILE INFUSION RATE 0.164GM/KG/HR
     Route: 042
     Dates: start: 201907
  2. GLUCOSE [Concomitant]
     Active Substance: DEXTROSE
     Indication: PARENTERAL NUTRITION
     Dosage: 5.6MG/KG/MIN
     Route: 042
     Dates: start: 201907
  3. NO DRUG NAME [Concomitant]
     Active Substance: UNSPECIFIED INGREDIENT
     Indication: PARENTERAL NUTRITION
     Dosage: APPROXIMATELY 2GM/KG/D
     Route: 042
     Dates: start: 201907

REACTIONS (3)
  - Seizure [Unknown]
  - Limb discomfort [Unknown]
  - Condition aggravated [Unknown]

NARRATIVE: CASE EVENT DATE: 201909
